FAERS Safety Report 17125894 (Version 1)
Quarter: 2019Q4

REPORT INFORMATION
  Report Type: Spontaneous
  Country: ES (occurrence: ES)
  Receive Date: 20191208
  Receipt Date: 20191208
  Transmission Date: 20200122
  Serious: Yes (Other)
  Sender: FDA-Public Use
  Company Number: ES-AMGEN-ESPNI2019201070

PATIENT
  Age: 77 Year
  Sex: Female
  Weight: 86 kg

DRUGS (1)
  1. ADALIMUMAB [Suspect]
     Active Substance: ADALIMUMAB
     Indication: PSORIASIS
     Dosage: 40 MILLIGRAM, Q3WK
     Route: 058
     Dates: start: 20170102, end: 20191030

REACTIONS (1)
  - Cholangitis acute [Recovered/Resolved with Sequelae]

NARRATIVE: CASE EVENT DATE: 20191030
